FAERS Safety Report 11780237 (Version 1)
Quarter: 2015Q4

REPORT INFORMATION
  Report Type: Spontaneous
  Country: US (occurrence: US)
  Receive Date: 20151126
  Receipt Date: 20151126
  Transmission Date: 20160305
  Serious: No
  Sender: FDA-Public Use
  Company Number: US-JNJFOC-20151102051

PATIENT
  Age: 83 Year
  Sex: Female

DRUGS (2)
  1. TYLENOL EXTRA STRENGTH [Suspect]
     Active Substance: ACETAMINOPHEN
     Indication: PAIN
     Dosage: 2 TABLETS EVERY 4 TO 6 HOURS
     Route: 048
     Dates: start: 20151028, end: 20151030
  2. TYLENOL EXTRA STRENGTH [Suspect]
     Active Substance: ACETAMINOPHEN
     Indication: HEADACHE
     Dosage: 2 TABLETS EVERY 4 TO 6 HOURS
     Route: 048
     Dates: start: 20151028, end: 20151030

REACTIONS (1)
  - Extra dose administered [Unknown]
